FAERS Safety Report 5192711-8 (Version None)
Quarter: 2006Q4

REPORT INFORMATION
  Report Type: 
  Country: None (occurrence: None)
  Receive Date: 20061228
  Receipt Date: 20061222
  Transmission Date: 20070319
  Serious: Yes (Life-Threatening, Other)
  Sender: FDA-Public Use
  Company Number: PHFR2006GB03725

PATIENT
  Age: 12 Year
  Sex: Male

DRUGS (3)
  1. MORPHINE (NGX) [Suspect]
     Indication: PAIN
     Route: 065
  2. PARACETAMOL (NGX) [Suspect]
     Indication: PAIN
     Dosage: 53 MG/KG, QD
     Route: 042
  3. DICLOFENAC SODIUM [Suspect]
     Indication: PAIN
     Route: 065

REACTIONS (8)
  - ABDOMINAL PAIN [None]
  - COLITIS ULCERATIVE [None]
  - DRUG INEFFECTIVE [None]
  - HYPOVOLAEMIA [None]
  - MEGACOLON [None]
  - PAIN [None]
  - PALLOR [None]
  - RECTAL HAEMORRHAGE [None]
